FAERS Safety Report 5250315-2 (Version None)
Quarter: 2007Q1

REPORT INFORMATION
  Report Type: 
  Country: None (occurrence: None)
  Receive Date: 20070228
  Receipt Date: 20060424
  Transmission Date: 20070707
  Serious: No
  Sender: FDA-Public Use
  Company Number: US-GLAXOSMITHKLINE-A0598830A

PATIENT
  Age: 41 Year
  Sex: Female

DRUGS (4)
  1. LAMICTAL [Suspect]
     Indication: BIPOLAR DISORDER
     Dosage: 25MG TWICE PER DAY
     Route: 048
     Dates: start: 20060308, end: 20060322
  2. ATIVAN [Concomitant]
  3. RESTORIL [Concomitant]
  4. PAXIL [Concomitant]

REACTIONS (2)
  - BLISTER [None]
  - PRURITUS [None]
